FAERS Safety Report 23668044 (Version 1)
Quarter: 2024Q1

REPORT INFORMATION
  Report Type: Spontaneous
  Country: US (occurrence: US)
  Receive Date: 20240325
  Receipt Date: 20240325
  Transmission Date: 20240410
  Serious: Yes (Other)
  Sender: FDA-Public Use
  Company Number: US-SANDOZ-SDZ2024US030773

PATIENT
  Age: 58 Year
  Sex: Female

DRUGS (1)
  1. ITRACONAZOLE [Suspect]
     Active Substance: ITRACONAZOLE
     Indication: Histoplasmosis
     Dosage: UNK
     Route: 048

REACTIONS (2)
  - Histoplasmosis [Recovering/Resolving]
  - Drug ineffective [Unknown]
